FAERS Safety Report 5016963-X (Version None)
Quarter: 2006Q2

REPORT INFORMATION
  Report Type: 
  Country: None (occurrence: None)
  Receive Date: 20060526
  Receipt Date: 20060516
  Transmission Date: 20061013
  Serious: Yes (Other)
  Sender: FDA-Public Use
  Company Number: 13378526

PATIENT
  Sex: Female

DRUGS (1)
  1. EMSAM [Suspect]
     Indication: DEPRESSION
     Dosage: 5 MILLIGRAM, 1/TOTAL TD
     Route: 062
     Dates: start: 20060515

REACTIONS (2)
  - HYPERTENSIVE CRISIS [None]
  - TACHYCARDIA [None]
